FAERS Safety Report 13439772 (Version 1)
Quarter: 2017Q2

REPORT INFORMATION
  Report Type: Report from Study
  Country: IT (occurrence: IT)
  Receive Date: 20170413
  Receipt Date: 20170413
  Transmission Date: 20170830
  Serious: Yes (Hospitalization)
  Sender: FDA-Public Use
  Company Number: IT-ROCHE-1918740

PATIENT
  Age: 70 Year
  Sex: Male
  Weight: 75 kg

DRUGS (4)
  1. BRETARIS [Concomitant]
     Active Substance: ACLIDINIUM BROMIDE
     Route: 065
     Dates: start: 20151201
  2. TOCILIZUMAB [Suspect]
     Active Substance: TOCILIZUMAB
     Indication: RHEUMATOID ARTHRITIS
     Dosage: DATE OF MOST RECENT DOSE PRIOR TO SAE 27/JAN/2017
     Route: 042
     Dates: start: 20151223, end: 20170213
  3. METHOTREXATE. [Suspect]
     Active Substance: METHOTREXATE
     Indication: RHEUMATOID ARTHRITIS
     Route: 065
  4. XARENEL [Concomitant]
     Route: 065
     Dates: start: 20150901

REACTIONS (2)
  - Pneumonia [Recovered/Resolved]
  - Pleural effusion [Recovered/Resolved]

NARRATIVE: CASE EVENT DATE: 20170213
